FAERS Safety Report 18821644 (Version 1)
Quarter: 2021Q1

REPORT INFORMATION
  Report Type: Spontaneous
  Country: US (occurrence: US)
  Receive Date: 20210202
  Receipt Date: 20210202
  Transmission Date: 20210419
  Serious: Yes (Other)
  Sender: FDA-Public Use
  Company Number: US-PACIRA-2021000023

PATIENT
  Age: 57 Year
  Sex: Male

DRUGS (10)
  1. EXPAREL [Suspect]
     Active Substance: BUPIVACAINE
     Indication: POSTOPERATIVE ANALGESIA
     Dosage: 266 MG, 20 CC
     Route: 065
  2. CEFAZOLIN [Concomitant]
     Active Substance: CEFAZOLIN
     Indication: PREOPERATIVE CARE
     Dosage: 1G BEFORE SURGERY
     Route: 042
  3. LORTAB [Concomitant]
     Active Substance: ACETAMINOPHEN\HYDROCODONE BITARTRATE
     Indication: POSTOPERATIVE ANALGESIA
     Dosage: 5 MG
     Route: 065
  4. PHENERGAN [Concomitant]
     Active Substance: PROMETHAZINE HYDROCHLORIDE
     Indication: POSTOPERATIVE CARE
     Dosage: 25 MG
     Route: 065
  5. ENTERIC?COATED ASPIRIN 325 MG [Concomitant]
     Indication: THROMBOSIS PROPHYLAXIS
     Dosage: BID
     Route: 065
  6. GABAPENTIN. [Concomitant]
     Active Substance: GABAPENTIN
     Indication: POSTOPERATIVE CARE
     Dosage: BID FOR 2 WEEKS
     Route: 065
  7. CORTISONE [Concomitant]
     Active Substance: CORTISONE
     Indication: PRODUCT USED FOR UNKNOWN INDICATION
     Dosage: NOT PROVIDED
     Route: 065
  8. VANCOMYCIN [Concomitant]
     Active Substance: VANCOMYCIN
     Indication: PREOPERATIVE CARE
     Dosage: 1G BEFORE SURGERY
     Route: 042
  9. MOBIC [Concomitant]
     Active Substance: MELOXICAM
     Indication: POSTOPERATIVE CARE
     Dosage: 7.5 MG
     Route: 065
  10. OXYCONTIN [Concomitant]
     Active Substance: OXYCODONE HYDROCHLORIDE
     Indication: PREOPERATIVE CARE
     Dosage: 10 MG
     Route: 065

REACTIONS (1)
  - Arthrofibrosis [Unknown]
